FAERS Safety Report 8428069 (Version 6)
Quarter: 2014Q1

REPORT INFORMATION
  Report Type: Report from Study
  Country: CA (occurrence: CA)
  Receive Date: 20120227
  Receipt Date: 20140116
  Transmission Date: 20141002
  Serious: Yes (Hospitalization, Other)
  Sender: FDA-Public Use
  Company Number: CA-ROCHE-1039074

PATIENT
  Age: 49 Year
  Sex: Male
  Weight: 95 kg

DRUGS (24)
  1. ACTEMRA [Suspect]
     Indication: RHEUMATOID ARTHRITIS
     Route: 042
     Dates: start: 20110316, end: 20120105
  2. ACTEMRA [Suspect]
     Route: 042
     Dates: start: 20110511
  3. ACTEMRA [Suspect]
     Route: 042
     Dates: start: 20121025
  4. ACTEMRA [Suspect]
     Route: 042
     Dates: start: 20121127
  5. ACTEMRA [Suspect]
     Route: 042
     Dates: start: 20130215
  6. METFORMIN HYDROCHLORIDE [Concomitant]
     Indication: DIABETES MELLITUS
     Route: 065
  7. ASPIRIN [Concomitant]
  8. GLICLAZIDE [Concomitant]
     Indication: DIABETES MELLITUS
  9. METHOTREXATE [Concomitant]
     Route: 065
     Dates: end: 20120601
  10. FOLIC ACID [Concomitant]
  11. CELEBREX [Concomitant]
  12. PREDNISONE [Concomitant]
  13. OXYCONTIN [Concomitant]
     Dosage: FREQUENCY: PRN
     Route: 065
  14. VITAMIN B1 [Concomitant]
  15. VITAMIN B2 [Concomitant]
  16. VITAMIN B3 [Concomitant]
  17. VITAMIN B6 [Concomitant]
  18. VITAMIN B5 [Concomitant]
  19. VITAMIN B12 [Concomitant]
  20. VITAMIN C [Concomitant]
  21. VITAMIN E [Concomitant]
  22. MANGANESE [Concomitant]
  23. VITAMIN K2 [Concomitant]
  24. VITAMIN D3 [Concomitant]

REACTIONS (7)
  - Arthropathy [Unknown]
  - Liver injury [Not Recovered/Not Resolved]
  - Haemarthrosis [Not Recovered/Not Resolved]
  - Arthropathy [Not Recovered/Not Resolved]
  - Local swelling [Not Recovered/Not Resolved]
  - Weight fluctuation [Not Recovered/Not Resolved]
  - Synovial cyst [Not Recovered/Not Resolved]
